FAERS Safety Report 18915325 (Version 1)
Quarter: 2021Q1

REPORT INFORMATION
  Report Type: Report from Study
  Country: US (occurrence: US)
  Receive Date: 20210219
  Receipt Date: 20210219
  Transmission Date: 20210420
  Serious: Yes (Other)
  Sender: FDA-Public Use
  Company Number: US-GILEAD-2021-0517209

PATIENT
  Age: 45 Year
  Sex: Female

DRUGS (2)
  1. AZTREONAM LYSINE [Suspect]
     Active Substance: AZTREONAM LYSINE
     Indication: CYSTIC FIBROSIS
     Dosage: 28 DAYS ON, 28 DAYS OFF
     Route: 065
     Dates: start: 202012
  2. RELIZORB [Concomitant]

REACTIONS (2)
  - Abdominal distension [Not Recovered/Not Resolved]
  - Pseudomonas infection [Not Recovered/Not Resolved]
